FAERS Safety Report 4561820-6 (Version None)
Quarter: 2005Q1

REPORT INFORMATION
  Report Type: 
  Country: None (occurrence: None)
  Receive Date: 20050126
  Receipt Date: 20050117
  Transmission Date: 20050727
  Serious: Yes (Hospitalization, Disabling)
  Sender: FDA-Public Use
  Company Number: 002#4#2005-00028

PATIENT
  Sex: Female

DRUGS (2)
  1. PPA/CPM-75/8MG (OTC) (PHENYLPROPANOLAMINE HCL, CHLORPHENIRAMINE MALEAT [Suspect]
     Indication: HYPERSENSITIVITY
     Dosage: ORAL
     Route: 048
  2. PPA/CPM-75/8MG (OTC) (PHENYLPROPANOLAMINE HCL, CHLORPHENIRAMINE MALEAT [Suspect]
     Indication: NASOPHARYNGITIS
     Dosage: ORAL
     Route: 048

REACTIONS (1)
  - HAEMORRHAGIC STROKE [None]
